FAERS Safety Report 11545523 (Version 1)
Quarter: 2015Q3

REPORT INFORMATION
  Report Type: Spontaneous
  Country: LT (occurrence: LT)
  Receive Date: 20150924
  Receipt Date: 20150924
  Transmission Date: 20151125
  Serious: Yes (Hospitalization)
  Sender: FDA-Public Use
  Company Number: PHHY2015LT113968

PATIENT
  Age: 21 Year
  Sex: Male
  Weight: 75 kg

DRUGS (3)
  1. XANAX [Suspect]
     Active Substance: ALPRAZOLAM
     Indication: COMPLETED SUICIDE
     Route: 048
     Dates: start: 20150906, end: 20150906
  2. LORATIN [Suspect]
     Active Substance: LORATADINE
     Indication: COMPLETED SUICIDE
     Route: 048
     Dates: start: 20150906, end: 20150906
  3. RELANIUM [Suspect]
     Active Substance: DIAZEPAM
     Indication: COMPLETED SUICIDE
     Route: 048
     Dates: start: 20150906, end: 20150906

REACTIONS (2)
  - Overdose [Recovering/Resolving]
  - Off label use [Recovering/Resolving]

NARRATIVE: CASE EVENT DATE: 20150906
